FAERS Safety Report 13835489 (Version 3)
Quarter: 2018Q2

REPORT INFORMATION
  Report Type: Spontaneous
  Country: US (occurrence: US)
  Receive Date: 20170804
  Receipt Date: 20180409
  Transmission Date: 20180711
  Serious: Yes (Life-Threatening, Hospitalization, Other)
  Sender: FDA-Public Use
  Company Number: US-SUN PHARMACEUTICAL INDUSTRIES LTD-2016US-129614

PATIENT
  Age: 53 Year
  Sex: Male

DRUGS (2)
  1. AMLODIPINE [Suspect]
     Active Substance: AMLODIPINE BESYLATE
     Indication: PRODUCT USED FOR UNKNOWN INDICATION
     Dosage: UNK
     Route: 048
  2. AMLODIPINE [Suspect]
     Active Substance: AMLODIPINE BESYLATE
     Dosage: IN TOTAL
     Route: 048

REACTIONS (7)
  - Brain injury [Unknown]
  - Hypotension [Not Recovered/Not Resolved]
  - Brain herniation [Unknown]
  - Intentional overdose [Unknown]
  - Overdose [Not Recovered/Not Resolved]
  - Cardiac arrest [Unknown]
  - Suicide attempt [Unknown]
